FAERS Safety Report 4406570-1 (Version None)
Quarter: 2004Q3

REPORT INFORMATION
  Report Type: 
  Country: None (occurrence: None)
  Receive Date: 20040723
  Receipt Date: 20040722
  Transmission Date: 20050211
  Serious: Yes (Death, Hospitalization)
  Sender: FDA-Public Use
  Company Number: DEPFP-C-20040013

PATIENT
  Age: 67 Year
  Sex: Female

DRUGS (7)
  1. NAVELBINE [Suspect]
     Indication: NON-SMALL CELL LUNG CANCER
     Dosage: 35MG CYCLIC
     Route: 042
     Dates: start: 20040420
  2. GEMCITABINE [Concomitant]
  3. CISPLATIN [Concomitant]
  4. ASPIRIN [Concomitant]
  5. DEXAMETHASONE [Concomitant]
  6. ENALAPRIL MALEATE [Concomitant]
  7. DOXEPIN HCL [Concomitant]

REACTIONS (4)
  - CIRCULATORY COLLAPSE [None]
  - DEHYDRATION [None]
  - ENTERITIS [None]
  - GENERAL PHYSICAL HEALTH DETERIORATION [None]
